FAERS Safety Report 7491683-0 (Version None)
Quarter: 2011Q2

REPORT INFORMATION
  Report Type: 
  Country: None (occurrence: None)
  Receive Date: 20110519
  Receipt Date: 20110419
  Transmission Date: 20111010
  Serious: No
  Sender: FDA-Public Use
  Company Number: US-BAYER-2011-035220

PATIENT
  Sex: Female

DRUGS (4)
  1. POTASSIUM [POTASSIUM] [Concomitant]
  2. ANTIHYPERTENSIVES [Concomitant]
  3. ALEVE (CAPLET) [Suspect]
     Indication: ARTHRITIS
     Dosage: 440 MG, BID
     Route: 048
  4. DIURETICS [Concomitant]

REACTIONS (1)
  - NO ADVERSE EVENT [None]
